FAERS Safety Report 7537087-3 (Version None)
Quarter: 2011Q2

REPORT INFORMATION
  Report Type: 
  Country: None (occurrence: None)
  Receive Date: 20110609
  Receipt Date: 20110527
  Transmission Date: 20111010
  Serious: Yes (Other)
  Sender: FDA-Public Use
  Company Number: PHHY2011AU38023

PATIENT
  Sex: Female
  Weight: 78 kg

DRUGS (3)
  1. CLOZAPINE [Suspect]
     Indication: SCHIZOPHRENIA
     Dates: start: 20101130, end: 20110501
  2. CLOZAPINE [Suspect]
     Dosage: 350 MG, NOCTE
     Dates: start: 20101202, end: 20110503
  3. EFFEXOR XR [Concomitant]
     Indication: DEPRESSION
     Dosage: 375 MG,MANE

REACTIONS (6)
  - LYMPHADENOPATHY [None]
  - VIRAL INFECTION [None]
  - WHITE BLOOD CELL COUNT DECREASED [None]
  - PANCYTOPENIA [None]
  - DIARRHOEA [None]
  - NEUTROPHIL COUNT DECREASED [None]
